FAERS Safety Report 9095359 (Version 1)
Quarter: 2013Q1

REPORT INFORMATION
  Report Type: Spontaneous
  Country: GR (occurrence: GR)
  Receive Date: 20130219
  Receipt Date: 20130219
  Transmission Date: 20140127
  Serious: Yes (Death, Other)
  Sender: FDA-Public Use
  Company Number: PHHY2013GR012101

PATIENT
  Age: 78 Year
  Sex: Male

DRUGS (8)
  1. CICLOSPORIN [Suspect]
  2. PREDNISONE [Suspect]
  3. METHYLPREDNISOLONE [Suspect]
  4. FOLIC ACID [Suspect]
  5. IMMUNOGLOBULINS [Suspect]
  6. CYCLOPHOSPHAMIDE [Suspect]
  7. PLATELETS [Concomitant]
  8. RED BLOOD CELLS [Concomitant]
     Dosage: 4 DF, UNK

REACTIONS (4)
  - Death [Fatal]
  - General physical health deterioration [Unknown]
  - Lower respiratory tract infection [Unknown]
  - Drug ineffective [Unknown]
